FAERS Safety Report 5644756-9 (Version None)
Quarter: 2008Q1

REPORT INFORMATION
  Report Type: 
  Country: None (occurrence: None)
  Receive Date: 20080229
  Receipt Date: 20070912
  Transmission Date: 20080703
  Serious: No
  Sender: FDA-Public Use
  Company Number: A0664869A

PATIENT
  Age: 58 Year
  Sex: Female

DRUGS (5)
  1. VALTREX [Suspect]
     Dosage: 500MG TWICE PER DAY
     Route: 048
     Dates: start: 20070716
  2. ATACAND [Concomitant]
  3. LIPITOR [Concomitant]
  4. WELLBUTRIN XL [Concomitant]
  5. AMBIEN [Concomitant]

REACTIONS (2)
  - NEUROPATHY PERIPHERAL [None]
  - PARAESTHESIA [None]
